FAERS Safety Report 9602450 (Version 1)
Quarter: 2013Q4

REPORT INFORMATION
  Report Type: Spontaneous
  Country: FR (occurrence: FR)
  Receive Date: 20131007
  Receipt Date: 20131007
  Transmission Date: 20140711
  Serious: Yes (Other)
  Sender: FDA-Public Use
  Company Number: FR-ELI_LILLY_AND_COMPANY-FR201309009200

PATIENT
  Age: 82 Year
  Sex: Female

DRUGS (7)
  1. CYMBALTA [Suspect]
     Dosage: 30 MG, UNKNOWN
     Dates: start: 201305, end: 20130625
  2. CYMBALTA [Suspect]
     Dosage: 60 MG, UNKNOWN
     Dates: start: 20130625
  3. ALPRAZOLAM [Concomitant]
     Dosage: UNK, UNKNOWN
  4. TENORMINE [Concomitant]
     Dosage: UNK, UNKNOWN
  5. LAROXYL [Concomitant]
     Dosage: UNK, UNKNOWN
  6. KENZEN [Concomitant]
     Dosage: UNK, UNKNOWN
  7. CRESTOR [Concomitant]
     Dosage: UNK, UNKNOWN

REACTIONS (2)
  - Gamma-glutamyltransferase increased [Unknown]
  - Transaminases increased [Unknown]
